FAERS Safety Report 8798344 (Version 2)
Quarter: 2015Q1

REPORT INFORMATION
  Report Type: Report from Study
  Country: US (occurrence: US)
  Receive Date: 20120920
  Receipt Date: 20150311
  Transmission Date: 20150721
  Serious: Yes (Death)
  Sender: FDA-Public Use
  Company Number: US-ROCHE-1103563

PATIENT
  Age: 66 Year
  Sex: Male
  Weight: 82 kg

DRUGS (5)
  1. AVASTIN [Suspect]
     Active Substance: BEVACIZUMAB
     Indication: RECTOSIGMOID CANCER
     Route: 042
  2. LEUCOVORIN [Concomitant]
     Active Substance: LEUCOVORIN
     Route: 042
  3. AVASTIN [Suspect]
     Active Substance: BEVACIZUMAB
     Route: 042
  4. FLAXSEED [Concomitant]
     Active Substance: FLAX SEED
  5. 5-FLUOROURACIL [Concomitant]
     Active Substance: FLUOROURACIL
     Route: 042

REACTIONS (6)
  - Paraesthesia [Unknown]
  - Death [Fatal]
  - Sensory disturbance [Unknown]
  - Diarrhoea [Unknown]
  - Hypoaesthesia [Unknown]
  - Thrombocytopenia [Unknown]

NARRATIVE: CASE EVENT DATE: 20050303
